FAERS Safety Report 6595949-8 (Version None)
Quarter: 2010Q1

REPORT INFORMATION
  Report Type: 
  Country: None (occurrence: None)
  Receive Date: 20100223
  Receipt Date: 20100208
  Transmission Date: 20100710
  Serious: Yes (Other)
  Sender: FDA-Public Use
  Company Number: PHHY2010DE07323

PATIENT
  Sex: Female

DRUGS (1)
  1. MERICOMB [Suspect]
     Dosage: 1 MG, UNK
     Route: 048

REACTIONS (1)
  - ARRHYTHMIA [None]
